FAERS Safety Report 5240082-0 (Version None)
Quarter: 2007Q1

REPORT INFORMATION
  Report Type: 
  Country: None (occurrence: None)
  Receive Date: 20070216
  Receipt Date: 20070206
  Transmission Date: 20070707
  Serious: Yes (Other)
  Sender: FDA-Public Use
  Company Number: LB-PFIZER INC-2007010326

PATIENT
  Age: 35 Year
  Sex: Male

DRUGS (4)
  1. SULFASALAZINE [Suspect]
     Indication: ANKYLOSING SPONDYLITIS
     Route: 048
  2. COLCHICINE [Concomitant]
  3. KETOPROFEN [Concomitant]
  4. ALL OTHER THERAPEUTIC PRODUCTS [Concomitant]

REACTIONS (2)
  - LIP SWELLING [None]
  - SWELLING FACE [None]
